FAERS Safety Report 14120026 (Version 1)
Quarter: 2017Q4

REPORT INFORMATION
  Report Type: Spontaneous
  Country: US (occurrence: US)
  Receive Date: 20171024
  Receipt Date: 20171024
  Transmission Date: 20180321
  Serious: No
  Sender: FDA-Public Use
  Company Number: US-NEUROCRINE BIOSCIENCES INC.-2017NBI00468

PATIENT
  Age: 81 Year
  Sex: Female
  Weight: 48.58 kg

DRUGS (13)
  1. LISINOPRIL. [Concomitant]
     Active Substance: LISINOPRIL
  2. LOPRESSOR [Concomitant]
     Active Substance: METOPROLOL TARTRATE
  3. GABAPENTIN. [Concomitant]
     Active Substance: GABAPENTIN
     Dates: end: 20170720
  4. INGREZZA [Suspect]
     Active Substance: VALBENAZINE
     Indication: TARDIVE DYSKINESIA
     Route: 048
     Dates: start: 201706, end: 201706
  5. BENZTROPINE [Concomitant]
     Active Substance: BENZTROPINE
  6. LATUDA [Concomitant]
     Active Substance: LURASIDONE HYDROCHLORIDE
  7. GLIMIPERIDE [Concomitant]
     Active Substance: GLIMEPIRIDE
  8. INGREZZA [Suspect]
     Active Substance: VALBENAZINE
     Route: 048
     Dates: start: 20170608, end: 20170722
  9. DONEPEZIL. [Concomitant]
     Active Substance: DONEPEZIL
  10. NAMENDA [Concomitant]
     Active Substance: MEMANTINE HYDROCHLORIDE
  11. HALOPERIDOL. [Concomitant]
     Active Substance: HALOPERIDOL
  12. DIVALPROEX [Concomitant]
     Active Substance: DIVALPROEX SODIUM
  13. JANUMET [Concomitant]
     Active Substance: METFORMIN HYDROCHLORIDE\SITAGLIPTIN PHOSPHATE

REACTIONS (5)
  - Fall [Unknown]
  - Drug effect incomplete [Not Recovered/Not Resolved]
  - Insomnia [Unknown]
  - Fatigue [Unknown]
  - Dyskinesia [Not Recovered/Not Resolved]

NARRATIVE: CASE EVENT DATE: 20170608
